FAERS Safety Report 4924581-4 (Version None)
Quarter: 2006Q1

REPORT INFORMATION
  Report Type: 
  Country: None (occurrence: None)
  Receive Date: 20060127
  Receipt Date: 20051115
  Transmission Date: 20060701
  Serious: Yes (Other)
  Sender: FDA-Public Use
  Company Number: 2005157821

PATIENT
  Age: 64 Year
  Sex: Female
  Weight: 86.1834 kg

DRUGS (10)
  1. LYRICA [Suspect]
     Indication: NEUROPATHY
     Dosage: 75 MG (75 MG,1 IN 1 D)
     Dates: start: 20051115
  2. IMDUR [Concomitant]
  3. ZEBETA [Concomitant]
  4. LASIX [Concomitant]
  5. K-DUR 10 [Concomitant]
  6. DARVOCET [Concomitant]
  7. NOVOLOG MIX 70/30 (INSULIN ASPART, PROTAMINE) [Concomitant]
  8. NOVOLOG [Concomitant]
  9. LANTUS [Concomitant]
  10. VITAMINS (VITAMINS) [Concomitant]

REACTIONS (1)
  - NAUSEA [None]
